FAERS Safety Report 23384997 (Version 1)
Quarter: 2024Q1

REPORT INFORMATION
  Report Type: Report from Study
  Country: US (occurrence: US)
  Receive Date: 20240109
  Receipt Date: 20240109
  Transmission Date: 20240409
  Serious: Yes (Other)
  Sender: FDA-Public Use
  Company Number: US-ABBVIE-5576579

PATIENT
  Sex: Female

DRUGS (1)
  1. HUMIRA [Suspect]
     Active Substance: ADALIMUMAB
     Indication: Psoriasis
     Dosage: FORM STRENGTH: 40 MILLIGRAM
     Route: 058
     Dates: start: 20230704

REACTIONS (9)
  - Multiple sclerosis [Unknown]
  - Disability [Not Recovered/Not Resolved]
  - Memory impairment [Unknown]
  - Diabetes mellitus [Recovering/Resolving]
  - Balance disorder [Recovering/Resolving]
  - Corrective lens user [Unknown]
  - Road traffic accident [Unknown]
  - Device issue [Unknown]
  - Intestinal obstruction [Unknown]
